FAERS Safety Report 19043477 (Version 1)
Quarter: 2021Q1

REPORT INFORMATION
  Report Type: Spontaneous
  Country: CN (occurrence: CN)
  Receive Date: 20210323
  Receipt Date: 20210323
  Transmission Date: 20210420
  Serious: Yes (Other)
  Sender: FDA-Public Use
  Company Number: CN-PFIZER INC-2021290676

PATIENT
  Age: 66 Year
  Sex: Female
  Weight: 60 kg

DRUGS (3)
  1. PREGABALIN. [Suspect]
     Active Substance: PREGABALIN
     Indication: ANALGESIC THERAPY
  2. OXYCODONE [Concomitant]
     Active Substance: OXYCODONE
     Indication: CANCER PAIN
     Dosage: 30 MG, 1X/DAY
     Route: 048
     Dates: start: 20210305, end: 20210313
  3. PREGABALIN. [Suspect]
     Active Substance: PREGABALIN
     Indication: CANCER PAIN
     Dosage: 75 MG, 1X/DAY
     Route: 048
     Dates: start: 20210309, end: 20210311

REACTIONS (3)
  - Off label use [Unknown]
  - Cognitive disorder [Unknown]
  - Disorganised speech [Unknown]

NARRATIVE: CASE EVENT DATE: 20210309
